FAERS Safety Report 7460896-6 (Version None)
Quarter: 2011Q2

REPORT INFORMATION
  Report Type: 
  Country: None (occurrence: None)
  Receive Date: 20110505
  Receipt Date: 20110426
  Transmission Date: 20111010
  Serious: Yes (Other)
  Sender: FDA-Public Use
  Company Number: US-ALLERGAN-1106082US

PATIENT
  Age: 4 Month
  Sex: Male

DRUGS (3)
  1. BOTULINUM TOXIN TYPE A [Suspect]
     Indication: OESOPHAGEAL ACHALASIA
     Dosage: 15 UNITS, SINGLE
  2. BOTULINUM TOXIN TYPE A [Suspect]
     Dosage: 22.5 UNITS, SINGLE
  3. BOTULINUM TOXIN TYPE A [Suspect]
     Dosage: 22.5 UNK, UNK

REACTIONS (3)
  - DYSPHAGIA [None]
  - ASPIRATION [None]
  - REGURGITATION [None]
